FAERS Safety Report 24739089 (Version 1)
Quarter: 2024Q4

REPORT INFORMATION
  Report Type: Spontaneous
  Country: US (occurrence: US)
  Receive Date: 20241216
  Receipt Date: 20241216
  Transmission Date: 20250115
  Serious: No
  Sender: PFIZER
  Company Number: US-PFIZER INC-PV202400162685

PATIENT
  Sex: Male

DRUGS (1)
  1. LORBRENA [Suspect]
     Active Substance: LORLATINIB
     Indication: Non-small cell lung cancer metastatic
     Dosage: UNK

REACTIONS (5)
  - Restlessness [Recovering/Resolving]
  - Dyskinesia [Recovering/Resolving]
  - Anger [Unknown]
  - Blood cholesterol increased [Unknown]
  - Weight increased [Unknown]
